FAERS Safety Report 5985718-1 (Version None)
Quarter: 2008Q4

REPORT INFORMATION
  Report Type: 
  Country: None (occurrence: None)
  Receive Date: 20081208
  Receipt Date: 20080328
  Transmission Date: 20090506
  Serious: No
  Sender: FDA-Public Use
  Company Number: US-AMGEN-KDL271799

PATIENT
  Sex: Male

DRUGS (3)
  1. ENBREL [Suspect]
     Indication: PSORIASIS
     Route: 058
     Dates: start: 20041001
  2. ENBREL [Suspect]
     Indication: PSORIATIC ARTHROPATHY
  3. SULFASALAZINE [Concomitant]
     Dates: start: 20080201

REACTIONS (6)
  - ARTHRALGIA [None]
  - INFLUENZA [None]
  - IRRITABILITY [None]
  - PSORIASIS [None]
  - RESPIRATORY TRACT CONGESTION [None]
  - SYNOVIAL CYST [None]
